FAERS Safety Report 9277375 (Version 1)
Quarter: 2013Q2

REPORT INFORMATION
  Report Type: Spontaneous
  Country: US (occurrence: None)
  Receive Date: 20130503
  Receipt Date: 20130503
  Transmission Date: 20140414
  Serious: Yes (Other)
  Sender: FDA-Public Use
  Company Number: None

PATIENT
  Age: 30 Year
  Sex: Female
  Weight: 55.57 kg

DRUGS (1)
  1. RIFAMPIN [Suspect]
     Route: 048
     Dates: start: 20130401, end: 20130423

REACTIONS (8)
  - Feeling hot [None]
  - Flushing [None]
  - Respiratory rate increased [None]
  - Rash [None]
  - Rash [None]
  - Rash [None]
  - Fatigue [None]
  - Unevaluable event [None]
